FAERS Safety Report 6404745-3 (Version None)
Quarter: 2009Q4

REPORT INFORMATION
  Report Type: 
  Country: None (occurrence: None)
  Receive Date: 20091016
  Receipt Date: 20091008
  Transmission Date: 20100525
  Serious: No
  Sender: FDA-Public Use
  Company Number: US-B.I. PHARMACEUTICALS,INC./RIDGEFIELD-2009-BP-11807BP

PATIENT
  Sex: Female

DRUGS (2)
  1. CLONIDINE HCL [Suspect]
     Indication: DRUG WITHDRAWAL SYNDROME
     Route: 048
     Dates: start: 20090101, end: 20090301
  2. ATENOLOL [Concomitant]
     Indication: HYPERTENSION

REACTIONS (4)
  - HEART RATE DECREASED [None]
  - HEART RATE INCREASED [None]
  - HYPOAESTHESIA [None]
  - SYNCOPE [None]
